FAERS Safety Report 9324732 (Version 2)
Quarter: 2013Q2

REPORT INFORMATION
  Report Type: Report from Study
  Country: DE (occurrence: DE)
  Receive Date: 20130603
  Receipt Date: 20130606
  Transmission Date: 20140414
  Serious: Yes (Hospitalization)
  Sender: FDA-Public Use
  Company Number: DE-ABBOTT-13P-062-1096490-00

PATIENT
  Age: 34 Year
  Sex: Male
  Weight: 67 kg

DRUGS (5)
  1. HUMIRA [Suspect]
     Indication: CROHN^S DISEASE
     Route: 058
     Dates: start: 20121211
  2. INFLIXIMAB [Concomitant]
     Indication: CROHN^S DISEASE
     Dates: start: 20130305
  3. MESALAZINE [Concomitant]
     Indication: CROHN^S DISEASE
     Route: 048
  4. FRESUBIN ENERGY FIBRE [Concomitant]
     Indication: PRODUCT USED FOR UNKNOWN INDICATION
  5. COLIFOAM [Concomitant]
     Indication: CROHN^S DISEASE

REACTIONS (10)
  - Crohn^s disease [Not Recovered/Not Resolved]
  - C-reactive protein increased [Unknown]
  - Large intestinal stenosis [Unknown]
  - Body temperature increased [Unknown]
  - Painful defaecation [Unknown]
  - Gastrointestinal inflammation [Unknown]
  - Haematochezia [Unknown]
  - General physical health deterioration [Unknown]
  - Perirectal abscess [Unknown]
  - Abscess intestinal [Unknown]
